FAERS Safety Report 9495763 (Version 2)
Quarter: 2013Q4

REPORT INFORMATION
  Report Type: Report from Study
  Country: FR (occurrence: FR)
  Receive Date: 20130903
  Receipt Date: 20131101
  Transmission Date: 20140711
  Serious: Yes (Hospitalization)
  Sender: FDA-Public Use
  Company Number: PHHY2013FR059379

PATIENT
  Age: 52 Year
  Sex: Male
  Weight: 78 kg

DRUGS (5)
  1. MYFORTIC [Suspect]
     Indication: IMMUNOSUPPRESSION
     Dates: start: 20110914
  2. SOLUPRED [Concomitant]
     Indication: IMMUNOSUPPRESSION
     Dates: start: 20110509, end: 20120807
  3. NEORAL [Suspect]
     Indication: IMMUNOSUPPRESSION
     Dosage: 250 MG, UNK
     Route: 048
     Dates: start: 20110505
  4. NEORAL [Suspect]
     Dosage: UNK
     Dates: start: 20110906, end: 20110919
  5. CERTICAN [Suspect]
     Indication: IMMUNOSUPPRESSION
     Dates: start: 20111105, end: 20111128

REACTIONS (4)
  - Bone pain [Recovered/Resolved]
  - Blood parathyroid hormone increased [Unknown]
  - Blood 25-hydroxycholecalciferol decreased [Unknown]
  - Myalgia [Recovered/Resolved]
